FAERS Safety Report 5947385-2 (Version None)
Quarter: 2008Q4

REPORT INFORMATION
  Report Type: 
  Country: None (occurrence: None)
  Receive Date: 20081110
  Receipt Date: 20081029
  Transmission Date: 20090506
  Serious: Yes (Other)
  Sender: FDA-Public Use
  Company Number: US-PFIZER INC-2008091630

PATIENT
  Sex: Female
  Weight: 96 kg

DRUGS (10)
  1. SUTENT [Suspect]
     Indication: RENAL CELL CARCINOMA
     Route: 048
     Dates: start: 20070101
  2. SYNTHROID [Concomitant]
  3. NORVASC [Concomitant]
  4. LASIX [Concomitant]
  5. OMEPRAZOLE [Concomitant]
  6. MAGNESIUM SULFATE [Concomitant]
  7. CALCIUM [Concomitant]
  8. POTASSIUM CHLORIDE [Concomitant]
  9. CALCIUM WITH VITAMIN D [Concomitant]
  10. ZYRTEC [Concomitant]

REACTIONS (4)
  - ANXIETY [None]
  - CEREBROVASCULAR ACCIDENT [None]
  - DEAFNESS UNILATERAL [None]
  - HEARING IMPAIRED [None]
